FAERS Safety Report 26124069 (Version 2)
Quarter: 2025Q4

REPORT INFORMATION
  Report Type: Spontaneous
  Country: IN (occurrence: IN)
  Receive Date: 20251205
  Receipt Date: 20251209
  Transmission Date: 20260118
  Serious: Yes (Hospitalization)
  Sender: ROCHE
  Company Number: IN-ROCHE-10000450847

PATIENT
  Age: 69 Year
  Sex: Male

DRUGS (4)
  1. RITUXIMAB [Suspect]
     Active Substance: RITUXIMAB
     Indication: Acquired haemophilia
     Route: 042
  2. PREDNISONE [Concomitant]
     Active Substance: PREDNISONE
  3. CYCLOPHOSPHAMIDE [Concomitant]
     Active Substance: CYCLOPHOSPHAMIDE
     Dosage: THE FOLLOWING DAY
  4. CYCLOPHOSPHAMIDE [Concomitant]
     Active Substance: CYCLOPHOSPHAMIDE

REACTIONS (5)
  - Septic shock [Unknown]
  - Shock haemorrhagic [Unknown]
  - Clostridium difficile colitis [Unknown]
  - Cytomegalovirus viraemia [Unknown]
  - Neutropenia [Unknown]
